FAERS Safety Report 21159124 (Version 3)
Quarter: 2022Q3

REPORT INFORMATION
  Report Type: Report from Study
  Country: GB (occurrence: GB)
  Receive Date: 20220802
  Receipt Date: 20220926
  Transmission Date: 20221027
  Serious: Yes (Hospitalization, Other)
  Sender: FDA-Public Use
  Company Number: GB-ABBVIE-22K-167-4489336-00

PATIENT
  Age: 71 Year
  Sex: Female

DRUGS (2)
  1. CARBIDOPA\LEVODOPA [Suspect]
     Active Substance: CARBIDOPA\LEVODOPA
     Indication: Parkinson^s disease
     Dosage: MD: 4.8MLS, CR: 3.9MLS, ED: 1.8MLS; DUODOPA 20MGS/5MGS?2.8MLS/HR
     Route: 050
  2. CARBIDOPA\LEVODOPA [Suspect]
     Active Substance: CARBIDOPA\LEVODOPA
     Dosage: 2.8MLS/HR?MD: 4.8MLS, CR: 3.9MLS, ED: 1.8MLS; DUODOPA 20MGS/5MGS
     Route: 050

REACTIONS (2)
  - Breast cancer stage III [Unknown]
  - Breast mass [Unknown]

NARRATIVE: CASE EVENT DATE: 20220101
